FAERS Safety Report 16446581 (Version 1)
Quarter: 2019Q2

REPORT INFORMATION
  Report Type: Spontaneous
  Country: PT (occurrence: PT)
  Receive Date: 20190618
  Receipt Date: 20190618
  Transmission Date: 20190711
  Serious: Yes (Other)
  Sender: FDA-Public Use
  Company Number: PT-MYLANLABS-2019M1057221

PATIENT
  Age: 22 Year
  Sex: Male

DRUGS (1)
  1. IBUPROFEN. [Suspect]
     Active Substance: IBUPROFEN
     Indication: PRODUCT USED FOR UNKNOWN INDICATION
     Dosage: 200 MILLIGRAM
     Dates: start: 201803, end: 201803

REACTIONS (3)
  - Angioedema [Recovered/Resolved]
  - Urticaria [Recovered/Resolved]
  - Nasal obstruction [Recovered/Resolved]

NARRATIVE: CASE EVENT DATE: 201803
